FAERS Safety Report 16825510 (Version 1)
Quarter: 2019Q3

REPORT INFORMATION
  Report Type: Spontaneous
  Country: US (occurrence: US)
  Receive Date: 20190919
  Receipt Date: 20190919
  Transmission Date: 20191005
  Serious: No
  Sender: FDA-Public Use
  Company Number: US-AUROBINDO-AUR-APL-2018-063890

PATIENT

DRUGS (1)
  1. ONDANSETRON HYDROCHLORIDE TABLETS 4 MG [Suspect]
     Active Substance: ONDANSETRON HYDROCHLORIDE
     Indication: MORNING SICKNESS
     Dosage: 1 TABLET FOR EVERY 8 HOURS
     Route: 048
     Dates: start: 20181223, end: 20181224

REACTIONS (6)
  - Feeling abnormal [Unknown]
  - Malaise [Unknown]
  - Drug ineffective [Unknown]
  - Abdominal pain upper [Unknown]
  - Product substitution issue [Unknown]
  - Exposure during pregnancy [Unknown]
